FAERS Safety Report 8899786 (Version 1)
Quarter: 2012Q4

REPORT INFORMATION
  Report Type: 
  Country: US (occurrence: US)
  Receive Date: 20121108
  Receipt Date: 20121108
  Transmission Date: 20130627
  Serious: No
  Sender: FDA-Public Use
  Company Number: US-AMGEN-USASP2012026200

PATIENT
  Age: 54 Year
  Sex: Female

DRUGS (4)
  1. ENBREL [Suspect]
     Indication: RHEUMATOID ARTHRITIS
     Dosage: 50 mg, qwk
     Dates: start: 20120106
  2. ENBREL [Suspect]
     Indication: PULMONARY FIBROSIS
  3. METHOTREXATE [Concomitant]
     Dosage: 6 mg, UNK
  4. PREDNISONE [Concomitant]

REACTIONS (5)
  - Musculoskeletal pain [Not Recovered/Not Resolved]
  - Arthralgia [Not Recovered/Not Resolved]
  - Dyspnoea exertional [Unknown]
  - Joint crepitation [Not Recovered/Not Resolved]
  - Weight increased [Not Recovered/Not Resolved]
